FAERS Safety Report 19404951 (Version 1)
Quarter: 2021Q2

REPORT INFORMATION
  Report Type: Report from Study
  Country: US (occurrence: US)
  Receive Date: 20210611
  Receipt Date: 20210611
  Transmission Date: 20210717
  Serious: Yes (Death, Hospitalization, Other)
  Sender: FDA-Public Use
  Company Number: US-ALS-000300

PATIENT
  Age: 87 Year
  Sex: Male

DRUGS (1)
  1. METFORMIN [Suspect]
     Active Substance: METFORMIN HYDROCHLORIDE
     Indication: PRODUCT USED FOR UNKNOWN INDICATION
     Route: 065

REACTIONS (12)
  - Shock [Unknown]
  - Urinary tract infection [Unknown]
  - Sepsis [Unknown]
  - Toxicity to various agents [Unknown]
  - Acute kidney injury [Unknown]
  - Death [Fatal]
  - Dehydration [Unknown]
  - Haemodialysis [Unknown]
  - Acidosis [Unknown]
  - Lactic acidosis [Unknown]
  - Respiratory failure [Unknown]
  - Continuous haemodiafiltration [Unknown]
